FAERS Safety Report 11149695 (Version 2)
Quarter: 2015Q2

REPORT INFORMATION
  Report Type: Spontaneous
  Country: FR (occurrence: FR)
  Receive Date: 20150529
  Receipt Date: 20150601
  Transmission Date: 20150821
  Serious: Yes (Life-Threatening)
  Sender: FDA-Public Use
  Company Number: FR-009507513-1505FRA015531

PATIENT
  Age: 68 Year
  Sex: Male

DRUGS (15)
  1. DIURETIC (UNSPECIFIED) [Concomitant]
     Active Substance: UNSPECIFIED INGREDIENT
     Indication: GENERALISED OEDEMA
  2. CONTRAMAL [Concomitant]
     Active Substance: TRAMADOL HYDROCHLORIDE
  3. BISOCOR [Concomitant]
     Active Substance: BISOPROLOL FUMARATE
  4. METHOTREXATE [Concomitant]
     Active Substance: METHOTREXATE
  5. LASILIX [Concomitant]
     Active Substance: FUROSEMIDE
  6. INEXIUM (ESOMEPRAZOLE MAGNESIUM) [Concomitant]
     Active Substance: ESOMEPRAZOLE MAGNESIUM
  7. MK-3009 [Suspect]
     Active Substance: DAPTOMYCIN
     Indication: PRODUCT USED FOR UNKNOWN INDICATION
     Dosage: UNK
     Route: 042
     Dates: start: 20141219
  8. MK-3009 [Suspect]
     Active Substance: DAPTOMYCIN
     Dosage: UNK
     Route: 042
     Dates: start: 20141222, end: 20150102
  9. SKENAN [Concomitant]
     Active Substance: MORPHINE SULFATE
  10. RIFAMPIN. [Concomitant]
     Active Substance: RIFAMPIN
  11. CEFOTAXIME SODIUM [Concomitant]
     Active Substance: CEFOTAXIME SODIUM
     Dosage: UNK
     Dates: start: 20141222
  12. MONO-TILDIEM [Concomitant]
     Active Substance: DILTIAZEM HYDROCHLORIDE
  13. BACTRIM [Suspect]
     Active Substance: SULFAMETHOXAZOLE\TRIMETHOPRIM
     Indication: SEPTIC ARTHRITIS STAPHYLOCOCCAL
     Dosage: 2 DF, BID
     Route: 048
     Dates: start: 20141222, end: 20150105
  14. TAZOCILLINE [Concomitant]
     Active Substance: PIPERACILLIN SODIUM\TAZOBACTAM SODIUM
     Dosage: UNK
     Dates: end: 20141222
  15. AMIKACIN [Concomitant]
     Active Substance: AMIKACIN

REACTIONS (1)
  - Interstitial lung disease [Recovered/Resolved]

NARRATIVE: CASE EVENT DATE: 20150102
